FAERS Safety Report 8944512 (Version 1)
Quarter: 2012Q4

REPORT INFORMATION
  Report Type: 
  Country: US (occurrence: US)
  Receive Date: 20121204
  Receipt Date: 20121204
  Transmission Date: 20130627
  Serious: No
  Sender: FDA-Public Use
  Company Number: US-AMGEN-USASP2012060316

PATIENT
  Age: 32 Year
  Sex: Female
  Weight: 68.93 kg

DRUGS (7)
  1. ENBREL [Suspect]
     Indication: PSORIATIC ARTHROPATHY
     Dosage: 50 mg, qwk
     Route: 058
     Dates: start: 20120309
  2. ENBREL [Suspect]
     Indication: RHEUMATOID ARTHRITIS
  3. PROZAC [Concomitant]
     Indication: DEPRESSION
     Dosage: 20 mg, UNK
     Route: 048
  4. TYLENOL /00020001/ [Concomitant]
     Indication: PAIN
     Dosage: UNK
     Route: 048
  5. TYLENOL /00020001/ [Concomitant]
     Indication: RHEUMATOID ARTHRITIS
  6. PREDNISONE [Concomitant]
     Indication: RHEUMATOID ARTHRITIS
     Dosage: 5 mg, UNK
     Route: 048
  7. DEPAKOTE [Concomitant]
     Indication: CONVULSION
     Dosage: 250 mg, UNK
     Route: 048

REACTIONS (8)
  - Pain [Not Recovered/Not Resolved]
  - Dyspnoea [Recovered/Resolved]
  - Dizziness [Recovered/Resolved]
  - Headache [Not Recovered/Not Resolved]
  - Sinusitis [Recovered/Resolved]
  - Otitis media [Recovering/Resolving]
  - Upper respiratory tract infection [Recovered/Resolved]
  - Pneumonia [Recovering/Resolving]
